FAERS Safety Report 5371831-9 (Version None)
Quarter: 2007Q2

REPORT INFORMATION
  Report Type: 
  Country: None (occurrence: None)
  Receive Date: 20070627
  Receipt Date: 20070622
  Transmission Date: 20071010
  Serious: Yes (Hospitalization)
  Sender: FDA-Public Use
  Company Number: FR-AVENTIS-200712089FR

PATIENT
  Age: 59 Year
  Sex: Male

DRUGS (5)
  1. LASILIX                            /00032601/ [Suspect]
     Route: 048
     Dates: end: 20070310
  2. CORDARONE [Concomitant]
  3. AMARYL [Concomitant]
  4. TRIATEC                            /00885601/ [Concomitant]
  5. ALLOPURINOL [Concomitant]

REACTIONS (1)
  - ACUTE PULMONARY OEDEMA [None]
